FAERS Safety Report 10307578 (Version 1)
Quarter: 2014Q3

REPORT INFORMATION
  Report Type: Spontaneous
  Country: US (occurrence: None)
  Receive Date: 20140714
  Receipt Date: 20140714
  Transmission Date: 20150326
  Serious: Yes (Life-Threatening)
  Sender: FDA-Public Use
  Company Number: None

PATIENT
  Age: 60 Year
  Sex: Female
  Weight: 73.94 kg

DRUGS (1)
  1. METROPROLOL 25MG WATSON LABS [Suspect]
     Active Substance: METOPROLOL
     Indication: THERAPY CHANGE
     Dosage: ONE PILL EVERY 24 HRS  ONCE DAILY  TAKEN BY MOUTH
     Route: 048
     Dates: start: 20140701, end: 20140707

REACTIONS (4)
  - Headache [None]
  - Chest discomfort [None]
  - Heart rate increased [None]
  - Blood pressure increased [None]

NARRATIVE: CASE EVENT DATE: 20140707
